FAERS Safety Report 18073580 (Version 5)
Quarter: 2020Q4

REPORT INFORMATION
  Report Type: Spontaneous
  Country: CZ (occurrence: CZ)
  Receive Date: 20200727
  Receipt Date: 20201210
  Transmission Date: 20210113
  Serious: Yes (Life-Threatening, Hospitalization, Other)
  Sender: FDA-Public Use
  Company Number: CZ-MYLANLABS-2020M1066289

PATIENT
  Age: 74 Year
  Sex: Male

DRUGS (14)
  1. ROSUVASTATIN. [Interacting]
     Active Substance: ROSUVASTATIN
     Dosage: 40 MILLIGRAM
  2. ROSUMOP [Interacting]
     Active Substance: ROSUVASTATIN CALCIUM
     Indication: PRODUCT USED FOR UNKNOWN INDICATION
     Dosage: UNK, QD,MISTAKENLY CO-ADMINISTERED 3 ROSUVASTATIN FORMULATIONS WITH DIFFERENT BRAND
  3. ROSUCARD [Interacting]
     Active Substance: ROSUVASTATIN CALCIUM
     Indication: PRODUCT USED FOR UNKNOWN INDICATION
     Dosage: UNK, QD,MISTAKENLY CO-ADMINISTERED 3 ROSUVASTATIN FORMULATIONS DIFFERENT BRAND
  4. SOLIFENACIN [Concomitant]
     Active Substance: SOLIFENACIN
     Dosage: 5-10 MG/DAY
  5. ROSUVASTATIN. [Suspect]
     Active Substance: ROSUVASTATIN
     Indication: PRODUCT USED FOR UNKNOWN INDICATION
     Dosage: MISTAKENLY ADMINISTERED 3 ROSUVASTATIN FORMULATION WITH DIFFERENT BRAND
     Route: 048
  6. INSULIN LISPRO [Concomitant]
     Active Substance: INSULIN LISPRO
     Indication: TYPE 2 DIABETES MELLITUS
     Dosage: 42 INTERNATIONAL UNIT, QD
  7. TAMSULOSIN [Concomitant]
     Active Substance: TAMSULOSIN
     Dosage: 0.4 MILLIGRAM, QD
     Route: 048
  8. ROSUVASTATIN. [Interacting]
     Active Substance: ROSUVASTATIN
     Dosage: UNK UNK, QD,MISTAKENLY CO-ADMINISTERED 3 ROSUVASTATIN FORMULATIONS DIFFERENT BRAND
  9. INSULIN GLARGINE [Concomitant]
     Active Substance: INSULIN GLARGINE
     Indication: TYPE 2 DIABETES MELLITUS
     Dosage: 44 INTERNATIONAL UNIT, QD
  10. SOLIFENACIN [Concomitant]
     Active Substance: SOLIFENACIN
     Dosage: 5-10 MG/DAY
  11. TAMSULOSIN [Concomitant]
     Active Substance: TAMSULOSIN
     Dosage: 0.4 MILLIGRAM, QD
  12. RILMENIDINE [Concomitant]
     Active Substance: RILMENIDINE
     Dosage: 1 MILLIGRAM, QD
  13. FINASTERIDE. [Concomitant]
     Active Substance: FINASTERIDE
     Dosage: 5 MILLIGRAM, QD
     Route: 048
  14. WARFARIN [Interacting]
     Active Substance: WARFARIN
     Indication: PRODUCT USED FOR UNKNOWN INDICATION
     Dosage: 3 MILLIGRAM, QD

REACTIONS (22)
  - Oedema peripheral [Recovered/Resolved]
  - Toxicity to various agents [Unknown]
  - Contraindicated product administered [Unknown]
  - Duplicate therapy error [Recovered/Resolved]
  - Asthenia [Recovered/Resolved]
  - Rhabdomyolysis [Recovering/Resolving]
  - Product name confusion [Unknown]
  - Mobility decreased [Recovered/Resolved]
  - Bedridden [Recovering/Resolving]
  - Fatigue [Recovered/Resolved]
  - International normalised ratio increased [Recovering/Resolving]
  - Urinary incontinence [Recovered/Resolved]
  - Acute kidney injury [Recovering/Resolving]
  - Labelled drug-drug interaction medication error [Recovered/Resolved]
  - Constipation [Unknown]
  - Overdose [Unknown]
  - Drug interaction [Unknown]
  - Medication error [Recovered/Resolved]
  - Myalgia [Recovered/Resolved]
  - Drug clearance decreased [Recovering/Resolving]
  - Dehydration [Recovered/Resolved]
  - Product administration error [Unknown]
